FAERS Safety Report 8119617-6 (Version None)
Quarter: 2012Q1

REPORT INFORMATION
  Report Type: 
  Country: None (occurrence: None)
  Receive Date: 20120203
  Receipt Date: 20120118
  Transmission Date: 20120608
  Serious: Yes (Hospitalization)
  Sender: FDA-Public Use
  Company Number: JPI-P-017433

PATIENT
  Age: 34 Year
  Sex: Male

DRUGS (10)
  1. OXYCODONE AND ACETAMINOPHEN [Concomitant]
  2. SERTRALINE HYDROCHLORIDE [Concomitant]
  3. BUPROPION HCL [Concomitant]
  4. RIZATRIPTAN [Concomitant]
  5. XYREM [Suspect]
     Indication: CATAPLEXY
     Dosage: 4.5 GM (2.25 GM, 2 IN 1 D), ORAL, 9 GM (4.5 GM, 2 IN 1 D), ORAL, 6 GM (3 GM, POSSIBLY MORE THAN 3 GM
     Route: 048
     Dates: start: 20110901, end: 20110901
  6. XYREM [Suspect]
     Indication: SOMNOLENCE
     Dosage: 4.5 GM (2.25 GM, 2 IN 1 D), ORAL, 9 GM (4.5 GM, 2 IN 1 D), ORAL, 6 GM (3 GM, POSSIBLY MORE THAN 3 GM
     Route: 048
     Dates: start: 20110901, end: 20110901
  7. XYREM [Suspect]
     Indication: CATAPLEXY
     Dosage: 4.5 GM (2.25 GM, 2 IN 1 D), ORAL, 9 GM (4.5 GM, 2 IN 1 D), ORAL, 6 GM (3 GM, POSSIBLY MORE THAN 3 GM
     Route: 048
     Dates: start: 20110727, end: 20110901
  8. XYREM [Suspect]
     Indication: SOMNOLENCE
     Dosage: 4.5 GM (2.25 GM, 2 IN 1 D), ORAL, 9 GM (4.5 GM, 2 IN 1 D), ORAL, 6 GM (3 GM, POSSIBLY MORE THAN 3 GM
     Route: 048
     Dates: start: 20110727, end: 20110901
  9. XYREM [Suspect]
     Indication: CATAPLEXY
     Dosage: 4.5 GM (2.25 GM, 2 IN 1 D), ORAL, 9 GM (4.5 GM, 2 IN 1 D), ORAL, 6 GM (3 GM, POSSIBLY MORE THAN 3 GM
     Route: 048
     Dates: start: 20110901
  10. XYREM [Suspect]
     Indication: SOMNOLENCE
     Dosage: 4.5 GM (2.25 GM, 2 IN 1 D), ORAL, 9 GM (4.5 GM, 2 IN 1 D), ORAL, 6 GM (3 GM, POSSIBLY MORE THAN 3 GM
     Route: 048
     Dates: start: 20110901

REACTIONS (5)
  - DEPRESSED LEVEL OF CONSCIOUSNESS [None]
  - PARASOMNIA [None]
  - AGGRESSION [None]
  - CONFUSIONAL STATE [None]
  - INCORRECT DOSE ADMINISTERED [None]
